FAERS Safety Report 10185100 (Version 1)
Quarter: 2014Q2

REPORT INFORMATION
  Report Type: Spontaneous
  Country: US (occurrence: None)
  Receive Date: 20140520
  Receipt Date: 20140520
  Transmission Date: 20141212
  Serious: Yes (Disabling)
  Sender: FDA-Public Use
  Company Number: None

PATIENT
  Age: 16 Year
  Sex: Male
  Weight: 88.45 kg

DRUGS (1)
  1. ACCUTANE [Suspect]

REACTIONS (8)
  - Depression [None]
  - Suicidal ideation [None]
  - Arthralgia [None]
  - Alopecia [None]
  - Dry skin [None]
  - Gastrointestinal pain [None]
  - Diarrhoea [None]
  - Erythema [None]
